FAERS Safety Report 5669997-6 (Version None)
Quarter: 2008Q1

REPORT INFORMATION
  Report Type: 
  Country: None (occurrence: None)
  Receive Date: 20080312
  Receipt Date: 20080304
  Transmission Date: 20080703
  Serious: Yes (Hospitalization)
  Sender: FDA-Public Use
  Company Number: 2008SP002664

PATIENT
  Age: 43 Year
  Sex: Female
  Weight: 76 kg

DRUGS (4)
  1. INTRON A [Suspect]
     Indication: MALIGNANT MELANOMA
     Dosage: 38 MIU; IV, 38 MIU; IV
     Route: 042
     Dates: start: 20070204, end: 20070204
  2. INTRON A [Suspect]
     Indication: MALIGNANT MELANOMA
     Dosage: 38 MIU; IV, 38 MIU; IV
     Route: 042
     Dates: start: 20071001, end: 20071026
  3. SEROXAT /00830801/ [Concomitant]
  4. DICLOFENAC SODIUM [Concomitant]

REACTIONS (3)
  - FALL [None]
  - HEAD INJURY [None]
  - LACERATION [None]
